FAERS Safety Report 24850266 (Version 1)
Quarter: 2025Q1

REPORT INFORMATION
  Report Type: Spontaneous
  Country: US (occurrence: US)
  Receive Date: 20250116
  Receipt Date: 20250116
  Transmission Date: 20250409
  Serious: Yes (Other)
  Sender: TEVA
  Company Number: US-TEVA-VS-3285176

PATIENT
  Age: 63 Year
  Sex: Female

DRUGS (4)
  1. OCTREOTIDE [Suspect]
     Active Substance: OCTREOTIDE
     Indication: Pancreatic neuroendocrine tumour
     Route: 065
     Dates: start: 202002
  2. LENVATINIB [Suspect]
     Active Substance: LENVATINIB
     Indication: Pancreatic neuroendocrine tumour
     Route: 065
  3. PEMBROLIZUMAB [Suspect]
     Active Substance: PEMBROLIZUMAB
     Indication: Pancreatic neuroendocrine tumour
     Route: 065
  4. EVEROLIMUS [Suspect]
     Active Substance: EVEROLIMUS
     Indication: Pancreatic neuroendocrine tumour
     Route: 065
     Dates: start: 202007

REACTIONS (5)
  - Neutropenia [Unknown]
  - Clostridium difficile infection [Unknown]
  - Gastroenteritis Escherichia coli [Unknown]
  - Colitis [Unknown]
  - Drug ineffective [Unknown]

NARRATIVE: CASE EVENT DATE: 20200101
